FAERS Safety Report 24002830 (Version 1)
Quarter: 2024Q2

REPORT INFORMATION
  Report Type: Spontaneous
  Country: JP (occurrence: JP)
  Receive Date: 20240624
  Receipt Date: 20240624
  Transmission Date: 20240715
  Serious: Yes (Death, Life-Threatening, Hospitalization, Other)
  Sender: FDA-Public Use
  Company Number: JP-ONO-2023JP023634

PATIENT
  Age: 64 Year
  Sex: Male
  Weight: 64.9 kg

DRUGS (7)
  1. OPDIVO [Suspect]
     Active Substance: NIVOLUMAB
     Indication: Non-small cell lung cancer recurrent
     Dosage: UNK
     Route: 042
     Dates: start: 20180220, end: 20230829
  2. IOPROMIDE [Suspect]
     Active Substance: IOPROMIDE
     Indication: Product used for unknown indication
     Dates: start: 20190808, end: 20190808
  3. GADOTERATE MEGLUMINE [Suspect]
     Active Substance: GADOTERATE MEGLUMINE
     Indication: Product used for unknown indication
     Dates: start: 20180620, end: 20180620
  4. SPIRIVA [Concomitant]
     Active Substance: TIOTROPIUM BROMIDE MONOHYDRATE
     Indication: Product used for unknown indication
     Route: 055
  5. CANDESARTAN [Concomitant]
     Active Substance: CANDESARTAN
     Indication: Product used for unknown indication
     Route: 048
  6. CALCIUM CARBONATE\CHOLECALCIFEROL\MAGNESIUM CARBONATE [Concomitant]
     Active Substance: CALCIUM CARBONATE\CHOLECALCIFEROL\MAGNESIUM CARBONATE
     Indication: Prophylaxis
     Dosage: 2 DF, EVERYDAY
     Route: 048
     Dates: start: 20180214
  7. DENOSUMAB [Concomitant]
     Active Substance: DENOSUMAB
     Indication: Product used for unknown indication
     Dosage: 120 MG, MONTHLY
     Route: 058
     Dates: start: 20180214

REACTIONS (10)
  - Pneumonia [Unknown]
  - Cardiac failure [Not Recovered/Not Resolved]
  - Acute myocardial infarction [Fatal]
  - Erythema [Unknown]
  - Pruritus [Unknown]
  - Nausea [Unknown]
  - Cardio-respiratory arrest [Unknown]
  - Multiple organ dysfunction syndrome [Fatal]
  - Off label use [Unknown]
  - Pericardial effusion [Unknown]

NARRATIVE: CASE EVENT DATE: 20230829
